FAERS Safety Report 5991644-4 (Version None)
Quarter: 2008Q4

REPORT INFORMATION
  Report Type: 
  Country: None (occurrence: None)
  Receive Date: 20081211
  Receipt Date: 20081202
  Transmission Date: 20090506
  Serious: Yes (Other)
  Sender: FDA-Public Use
  Company Number: JP-PFIZER INC-2008098810

PATIENT

DRUGS (1)
  1. XALATAN [Suspect]
     Route: 047

REACTIONS (1)
  - PLEURAL EFFUSION [None]
